FAERS Safety Report 8599565 (Version 2)
Quarter: 2014Q1

REPORT INFORMATION
  Report Type: Spontaneous
  Country: US (occurrence: None)
  Receive Date: 20120323
  Receipt Date: 20130305
  Transmission Date: 20141002
  Serious: Yes (Other)
  Sender: FDA-Public Use
  Company Number: 163-21880-11072917

PATIENT
  Age: 61 Year
  Sex: Male
  Weight: 83.92 kg

DRUGS (9)
  1. REVLIMID [Suspect]
     Indication: PLASMA CELL MYELOMA
     Route: 048
     Dates: start: 201105
  2. ASPIRIN (ACETYLSALICYLIC ACID) [Concomitant]
  3. CARBAMAZEPINE [Concomitant]
  4. COMBIGAN [Concomitant]
  5. DECADRON [Concomitant]
  6. LOVENOX [Concomitant]
  7. LUBRICATING EYE DROPS UNSPECIFIED [Concomitant]
  8. NEXIUM (ESOMEPRAZOLE) [Concomitant]
  9. VELCADE [Concomitant]

REACTIONS (5)
  - Thrombosis [None]
  - Thrombosis [None]
  - Platelet count decreased [None]
  - Headache [None]
  - Nasopharyngitis [None]
